FAERS Safety Report 19889752 (Version 1)
Quarter: 2021Q3

REPORT INFORMATION
  Report Type: Spontaneous
  Country: US (occurrence: US)
  Receive Date: 20210927
  Receipt Date: 20210927
  Transmission Date: 20211014
  Serious: Yes (Hospitalization)
  Sender: FDA-Public Use
  Company Number: None

PATIENT
  Sex: Female

DRUGS (28)
  1. GABAPENTIN CAP 100MG [Concomitant]
  2. XOPENEX HFA AER [Concomitant]
  3. TOBRAMYCIN 300MG/5ML TOBI GEQ [Suspect]
     Active Substance: TOBRAMYCIN
     Indication: CYSTIC FIBROSIS
     Dosage: ?          OTHER DOSE:300MG/5ML;?
     Route: 055
     Dates: start: 20180516
  4. CALCIUM CARB CHW 500MG [Concomitant]
  5. CAYSTON INH 75MG [Concomitant]
  6. LEVOTHYROXIN TAB 50MCG [Concomitant]
  7. NOVOLOG INJ FLEXPEN [Concomitant]
  8. PULMOZYME [Concomitant]
     Active Substance: DORNASE ALFA
  9. SUDAFED CONG TAB 30MG [Concomitant]
  10. BUPROPION TAB 100MG SR [Concomitant]
  11. LANTUS INJ 100/ML [Concomitant]
  12. MEPHYTON TAB 5MG [Concomitant]
  13. PANCRELIPASE CAP 5000UNIT [Concomitant]
  14. RANITIDINE TAB 150MG [Concomitant]
     Active Substance: RANITIDINE
  15. TRIKAFTA [Concomitant]
     Active Substance: ELEXACAFTOR\IVACAFTOR\TEZACAFTOR
  16. METOCLOPRAM TAB 10MG [Concomitant]
  17. NASONEX [Concomitant]
     Active Substance: MOMETASONE FUROATE
  18. OMEPRAZOLE. [Concomitant]
     Active Substance: OMEPRAZOLE
  19. ALBUTEROL SULFATE. [Concomitant]
     Active Substance: ALBUTEROL SULFATE
  20. FERREX 150 CAP 150MG [Concomitant]
  21. MULTIVITAMIN CHW [Concomitant]
  22. SINGULAIR [Concomitant]
     Active Substance: MONTELUKAST SODIUM
  23. TOBI PODHALR CAP 28MG [Concomitant]
  24. VANCOMYCIN CAP 125MG [Concomitant]
  25. VITAMIN E [Concomitant]
     Active Substance: .ALPHA.-TOCOPHEROL
  26. AZITHROMYCIN ANHYDROUS. [Concomitant]
     Active Substance: AZITHROMYCIN ANHYDROUS
  27. HYDROXYZ PAM CAP 50MG [Concomitant]
  28. SYMBICORT AER 160?4.5 [Concomitant]

REACTIONS (1)
  - Cystic fibrosis [None]
